FAERS Safety Report 13853230 (Version 1)
Quarter: 2017Q3

REPORT INFORMATION
  Report Type: Spontaneous
  Country: US (occurrence: US)
  Receive Date: 20170809
  Receipt Date: 20170809
  Transmission Date: 20171127
  Serious: Yes (Hospitalization, Disabling)
  Sender: FDA-Public Use
  Company Number: None

PATIENT
  Age: 41 Year
  Sex: Female
  Weight: 58.5 kg

DRUGS (1)
  1. LUPRON DEPOT [Suspect]
     Active Substance: LEUPROLIDE ACETATE
     Dosage: ?          OTHER FREQUENCY:3 MONTH INJECTION;?
     Route: 058

REACTIONS (7)
  - Hormone level abnormal [None]
  - Musculoskeletal pain [None]
  - Acne [None]
  - Bedridden [None]
  - Fibromyalgia [None]
  - Cardiovascular disorder [None]
  - Weight decreased [None]
